FAERS Safety Report 10029450 (Version 2)
Quarter: 2014Q1

REPORT INFORMATION
  Report Type: Spontaneous
  Country: VE (occurrence: VE)
  Receive Date: 20140322
  Receipt Date: 20140331
  Transmission Date: 20141002
  Serious: Yes (Other)
  Sender: FDA-Public Use
  Company Number: PHHY2014VE034394

PATIENT
  Age: 19 Year
  Sex: Female

DRUGS (5)
  1. TOBI [Suspect]
     Indication: CYSTIC FIBROSIS
     Route: 055
  2. CEFTAZIDIME [Suspect]
     Indication: CONDITION AGGRAVATED
  3. ANTIBIOTICS [Suspect]
     Indication: LUNG DISORDER
     Route: 042
  4. ANTIBIOTICS [Suspect]
     Indication: DISEASE RECURRENCE
  5. ANTIBIOTICS [Suspect]
     Indication: RESPIRATORY TRACT INFECTION

REACTIONS (8)
  - Lung disorder [Unknown]
  - Disease recurrence [Unknown]
  - Respiratory tract infection [Unknown]
  - Respiratory disorder [Unknown]
  - Condition aggravated [Unknown]
  - Premature labour [Unknown]
  - Maternal exposure during pregnancy [Unknown]
  - Exposure during breast feeding [Unknown]
